FAERS Safety Report 9314906 (Version 1)
Quarter: 2013Q2

REPORT INFORMATION
  Report Type: Spontaneous
  Country: US (occurrence: US)
  Receive Date: 20130529
  Receipt Date: 20130529
  Transmission Date: 20140414
  Serious: Yes (Other)
  Sender: FDA-Public Use
  Company Number: US-UCBSA-086626

PATIENT
  Age: 64 Year
  Sex: Female

DRUGS (2)
  1. CIMZIA [Suspect]
     Indication: RHEUMATOID ARTHRITIS
     Dosage: DOSE: 200 MG/ML AT WEEKS 0,2, 4 AND EVERY 4 WEEKS
     Dates: start: 201303
  2. CIMZIA [Suspect]
     Indication: CROHN^S DISEASE
     Dosage: DOSE: 200 MG/ML AT WEEKS 0,2, 4 AND EVERY 4 WEEKS
     Dates: start: 201303

REACTIONS (3)
  - Cystitis [Not Recovered/Not Resolved]
  - Local swelling [Not Recovered/Not Resolved]
  - Skin discolouration [Not Recovered/Not Resolved]
